FAERS Safety Report 7030301-2 (Version None)
Quarter: 2010Q4

REPORT INFORMATION
  Report Type: 
  Country: None (occurrence: None)
  Receive Date: 20101006
  Receipt Date: 20100923
  Transmission Date: 20110411
  Serious: Yes (Hospitalization, Other)
  Sender: FDA-Public Use
  Company Number: US-ELI_LILLY_AND_COMPANY-US201009007138

PATIENT
  Sex: Female

DRUGS (15)
  1. FORTEO [Suspect]
     Indication: OSTEOPOROSIS
  2. ACTOS [Concomitant]
     Dosage: 45 MG, DAILY (1/D)
  3. GLUCOSAMINE SULFATE [Concomitant]
     Dosage: 2000 MG, 2/D
  4. ASCORBIC ACID [Concomitant]
     Dosage: 500 MG, DAILY (1/D)
  5. ZINC [Concomitant]
     Dosage: 50 MG, DAILY (1/D)
  6. IRON [Concomitant]
     Dosage: 65 MG, DAILY (1/D)
  7. TOPAMAX [Concomitant]
     Dosage: 25 MG, DAILY (1/D)
  8. VERAPAMIL [Concomitant]
     Dosage: 240 MG, 2/D
  9. POTASSIUM CHLORIDE [Concomitant]
     Dosage: UNK, 2/D
  10. LISINOPRIL [Concomitant]
     Dosage: 40 MG, DAILY (1/D)
  11. CARVEDILOL [Concomitant]
     Dosage: 6.25 MG, 2/D
  12. VICODIN [Concomitant]
     Dosage: UNK, DAILY (1/D)
  13. DITROPAN XL [Concomitant]
     Dosage: 15 MG, DAILY (1/D)
  14. ALLEGRA [Concomitant]
     Dosage: 60 MG, DAILY (1/D)
  15. LIPITOR [Concomitant]
     Dosage: 5 MG, DAILY (1/D)

REACTIONS (3)
  - CARDIAC FAILURE [None]
  - DYSPNOEA [None]
  - MALAISE [None]
